FAERS Safety Report 9699794 (Version 2)
Quarter: 2013Q4

REPORT INFORMATION
  Report Type: Spontaneous
  Country: US (occurrence: US)
  Receive Date: 20131120
  Receipt Date: 20131216
  Transmission Date: 20140711
  Serious: No
  Sender: FDA-Public Use
  Company Number: US-TEVA-445270USA

PATIENT
  Age: 40 Year
  Sex: Male
  Weight: 74 kg

DRUGS (9)
  1. FENTORA [Suspect]
     Indication: BACK PAIN
     Route: 002
     Dates: start: 2009
  2. ATACAND [Concomitant]
     Indication: HYPERTENSION
  3. CYCLOSPORINE [Concomitant]
     Indication: IMMUNOSUPPRESSION
  4. MYFORTIC [Concomitant]
     Indication: IMMUNOSUPPRESSION
  5. COREG [Concomitant]
     Indication: HYPERTENSION
  6. DRONABINOL [Concomitant]
     Indication: NAUSEA
  7. CLONIDINE [Concomitant]
     Indication: HYPERTENSION
  8. TESTOSTERONE [Concomitant]
     Indication: METABOLIC DISORDER
  9. FENTANYL [Concomitant]
     Indication: PAIN
     Route: 062

REACTIONS (4)
  - Back pain [Not Recovered/Not Resolved]
  - Mobility decreased [Not Recovered/Not Resolved]
  - Fatigue [Not Recovered/Not Resolved]
  - Off label use [Not Recovered/Not Resolved]
